FAERS Safety Report 7472215-X (Version None)
Quarter: 2011Q2

REPORT INFORMATION
  Report Type: 
  Country: None (occurrence: None)
  Receive Date: 20110511
  Receipt Date: 20110311
  Transmission Date: 20111010
  Serious: No
  Sender: FDA-Public Use
  Company Number: A0918547A

PATIENT
  Age: 53 Year
  Sex: Female

DRUGS (7)
  1. AMBIEN [Concomitant]
  2. TYKERB [Suspect]
     Dosage: 1250MGD PER DAY
     Route: 048
  3. IBUPROFEN [Concomitant]
  4. BENADRYL [Concomitant]
  5. VALACYCLOVIR [Concomitant]
  6. ATIVAN [Concomitant]
  7. IMODIUM MULTI-SYMPTOM RELIEF [Concomitant]

REACTIONS (2)
  - RASH ERYTHEMATOUS [None]
  - MYALGIA [None]
